FAERS Safety Report 23344293 (Version 2)
Quarter: 2024Q1

REPORT INFORMATION
  Report Type: Report from Study
  Country: US (occurrence: US)
  Receive Date: 20231228
  Receipt Date: 20240104
  Transmission Date: 20240410
  Serious: No
  Sender: FDA-Public Use
  Company Number: US-ABBVIE-5560336

PATIENT
  Sex: Male
  Weight: 79 kg

DRUGS (21)
  1. RINVOQ [Suspect]
     Active Substance: UPADACITINIB
     Indication: Crohn^s disease
     Route: 048
     Dates: start: 20230713
  2. LOPERAMIDE [Concomitant]
     Active Substance: LOPERAMIDE
     Indication: Crohn^s disease
     Dosage: FREQUENCY TEXT: 1 - AM + 1 - PM?DURATION TEXT: 180- PILLS AS PER RX
  3. OXYBUTYNIN [Concomitant]
     Active Substance: OXYBUTYNIN
     Indication: Hypertonic bladder
     Dosage: EXTENDED RELEASE?FREQUENCY TEXT: 1 - PM?DURATION TEXT: 90- PILLS AS PER RX
  4. MAGNESIUM [Concomitant]
     Active Substance: MAGNESIUM
     Indication: Blood pressure measurement
     Dosage: FREQUENCY TEXT: 2 - AM?DURATION TEXT: 60- PILLS AS PER RX
  5. CELECOXIB [Concomitant]
     Active Substance: CELECOXIB
     Indication: Arthritis
     Dosage: FREQUENCY TEXT: 1 - AM + 1 - PM?DURATION TEXT: 180 - PILLS AS PER RX
  6. CARVEDILOL [Concomitant]
     Active Substance: CARVEDILOL
     Indication: Blood pressure measurement
     Dosage: FREQUENCY TEXT: 1/2 - AM  + 1 - PM?DURATION TEXT: 60- PILLS AS PER RX
  7. VITAMIN E [Concomitant]
     Active Substance: .ALPHA.-TOCOPHEROL
     Indication: Routine health maintenance
  8. PANTOPRAZOLE SODIUM [Concomitant]
     Active Substance: PANTOPRAZOLE SODIUM
     Indication: Gastrooesophageal reflux disease
     Dosage: FREQUENCY TEXT: 1 - PM + 1 - PM?DURATION TEXT: 180- PILLS AS PER RX
  9. VITAMIN D3 [Concomitant]
     Active Substance: CHOLECALCIFEROL
     Indication: Routine health maintenance
  10. VITAMIN B12 [Concomitant]
     Active Substance: CYANOCOBALAMIN
     Indication: Routine health maintenance
  11. HERBALS [Concomitant]
     Active Substance: HERBALS
     Indication: Memory impairment
  12. DICYCLOMINE [Concomitant]
     Active Substance: DICYCLOMINE HYDROCHLORIDE
     Indication: Irritable bowel syndrome
     Dosage: FREQUENCY TEXT: 1-AM + 1- PM?DURATION TEXT: 180- PILLS AS PER RX
  13. LOSARTAN [Concomitant]
     Active Substance: LOSARTAN
     Indication: Blood pressure measurement
     Dosage: FREQUENCY TEXT: 1- PM?DURATION TEXT: 90- PILLS AS PER RX
  14. FLUOCINONIDE [Concomitant]
     Active Substance: FLUOCINONIDE
     Indication: Psoriasis
     Dosage: .05% TROPICA SOL?FREQUENCY TEXT: AS NEEDED
  15. COENZYME Q10 [Concomitant]
     Active Substance: DIETARY SUPPLEMENT\UBIDECARENONE
     Indication: Routine health maintenance
  16. ATORVASTATIN [Concomitant]
     Active Substance: ATORVASTATIN
     Indication: Blood cholesterol
     Dosage: FREQUENCY TEXT: 1- PM?DURATION TEXT: 90- PILLS AS PER RX
  17. VITAMIN C [Concomitant]
     Active Substance: ASCORBIC ACID
     Indication: Routine health maintenance
  18. ESCITALOPRAM [Concomitant]
     Active Substance: ESCITALOPRAM OXALATE
     Indication: Anxiety
     Dosage: FREQUENCY TEXT: 1 - PM?DURATION TEXT: 180 - PILLS AS PER RX
  19. AMLODIPINE [Concomitant]
     Active Substance: AMLODIPINE BESYLATE
     Indication: Blood pressure measurement
     Dosage: FREQUENCY TEXT: 1 - PM?DURATION TEXT: 30- PILLS AS PER RX
  20. IRON [Concomitant]
     Active Substance: IRON
     Indication: Crohn^s disease
  21. PROBIOTICS NOS [Concomitant]
     Active Substance: PROBIOTICS NOS
     Indication: Irritable bowel syndrome
     Dosage: 50 BILLION CFU 1 DAILY

REACTIONS (3)
  - Ulcer [Unknown]
  - Irritable bowel syndrome [Unknown]
  - Crohn^s disease [Unknown]

NARRATIVE: CASE EVENT DATE: 20230101
